FAERS Safety Report 19442231 (Version 1)
Quarter: 2021Q2

REPORT INFORMATION
  Report Type: Spontaneous
  Country: US (occurrence: US)
  Receive Date: 20210618
  Receipt Date: 20210618
  Transmission Date: 20210717
  Serious: Yes (Other)
  Sender: FDA-Public Use
  Company Number: None

PATIENT
  Age: 67 Year
  Sex: Female
  Weight: 63.9 kg

DRUGS (12)
  1. METFORMIN [Concomitant]
     Active Substance: METFORMIN HYDROCHLORIDE
  2. VITAMINS A, D, E, K [Concomitant]
  3. PROBIOTIC [Concomitant]
     Active Substance: PROBIOTICS NOS
  4. CELEBREX [Concomitant]
     Active Substance: CELECOXIB
  5. VOLTAREN [Concomitant]
     Active Substance: DICLOFENAC SODIUM
  6. PRIMIDONE SUBSTITUTE FOR MYSOLINE [Suspect]
     Active Substance: PRIMIDONE
     Indication: FAMILIAL TREMOR
     Dosage: ?          QUANTITY:1 TABLET(S);?
     Route: 048
     Dates: start: 20210607, end: 20210618
  7. FIBER [Concomitant]
     Active Substance: PSYLLIUM HUSK
  8. FISH OIL [Concomitant]
     Active Substance: FISH OIL
  9. PRIMIDONE SUBSTITUTE FOR MYSOLINE [Suspect]
     Active Substance: PRIMIDONE
     Indication: ESSENTIAL TREMOR
     Dosage: ?          QUANTITY:1 TABLET(S);?
     Route: 048
     Dates: start: 20210607, end: 20210618
  10. MAGNESIUM CITRATE. [Concomitant]
     Active Substance: MAGNESIUM CITRATE
  11. CALCIUM CITRATE [Concomitant]
     Active Substance: CALCIUM CITRATE
  12. LANSOPRAZOLE. [Concomitant]
     Active Substance: LANSOPRAZOLE

REACTIONS (2)
  - Rash pruritic [None]
  - Rash [None]

NARRATIVE: CASE EVENT DATE: 20210618
